FAERS Safety Report 6181102-9 (Version None)
Quarter: 2009Q2

REPORT INFORMATION
  Report Type: 
  Country: None (occurrence: None)
  Receive Date: 20090501
  Receipt Date: 20090218
  Transmission Date: 20091009
  Serious: Yes (Disabling)
  Sender: FDA-Public Use
  Company Number: US025483

PATIENT
  Age: 72 Year
  Sex: Female
  Weight: 87.0906 kg

DRUGS (3)
  1. TREANDA [Suspect]
     Indication: CHRONIC LYMPHOCYTIC LEUKAEMIA
     Dosage: (185 MG/M2, DAILY X 2 DAYS EVERY 28 DAYS CYCLE) , INTRAVENOUS
     Route: 042
     Dates: start: 20081230, end: 20081231
  2. UNKNOWN STEROID (CORTICOSTEROID NOS) [Concomitant]
  3. ANTIEMETIC (ANTIEMETICS AND ANTINAUSEANTS) [Concomitant]

REACTIONS (4)
  - CONTUSION [None]
  - OEDEMA PERIPHERAL [None]
  - PYREXIA [None]
  - RASH [None]
